FAERS Safety Report 15941074 (Version 2)
Quarter: 2019Q1

REPORT INFORMATION
  Report Type: Spontaneous
  Country: CA (occurrence: CA)
  Receive Date: 20190208
  Receipt Date: 20190208
  Transmission Date: 20190417
  Serious: Yes (Other)
  Sender: FDA-Public Use
  Company Number: CA-ASCEND THERAPEUTICS-2062434

PATIENT
  Age: 68 Year
  Sex: Female

DRUGS (1)
  1. ESTROGEL [Suspect]
     Active Substance: ESTRADIOL

REACTIONS (3)
  - Incorrect dose administered by product [Unknown]
  - Product quality issue [Unknown]
  - Postmenopausal haemorrhage [Unknown]
